FAERS Safety Report 17065404 (Version 5)
Quarter: 2020Q4

REPORT INFORMATION
  Report Type: Report from Study
  Country: CA (occurrence: CA)
  Receive Date: 20191122
  Receipt Date: 20201203
  Transmission Date: 20210113
  Serious: Yes (Other)
  Sender: FDA-Public Use
  Company Number: CA-GLAXOSMITHKLINE-CA2019AMR207402

PATIENT
  Sex: Female

DRUGS (2)
  1. MEPOLIZUMAB [Suspect]
     Active Substance: MEPOLIZUMAB
     Indication: ASTHMA
     Dosage: 100 MG, Z,(1 MONTH)
     Route: 042
     Dates: start: 20180531
  2. MEPOLIZUMAB [Suspect]
     Active Substance: MEPOLIZUMAB
     Dosage: 100 MG, Z,(MONTHLY)
     Route: 042

REACTIONS (6)
  - Paraesthesia [Unknown]
  - Uterine cancer [Unknown]
  - Burning sensation [Unknown]
  - Papillary serous endometrial carcinoma [Unknown]
  - Hypoaesthesia [Unknown]
  - Grip strength decreased [Unknown]
